FAERS Safety Report 14540715 (Version 1)
Quarter: 2018Q1

REPORT INFORMATION
  Report Type: Spontaneous
  Country: AU (occurrence: AU)
  Receive Date: 20180216
  Receipt Date: 20180216
  Transmission Date: 20180509
  Serious: Yes (Hospitalization)
  Sender: FDA-Public Use
  Company Number: AU-OTSUKA-DJ20062332

PATIENT
  Age: 37 Year
  Sex: Female

DRUGS (2)
  1. ABILIFY [Suspect]
     Active Substance: ARIPIPRAZOLE
     Route: 048
  2. CLOZARIL [Suspect]
     Active Substance: CLOZAPINE
     Route: 048
     Dates: start: 20051010

REACTIONS (8)
  - Hyperhidrosis [Unknown]
  - Renal failure [Unknown]
  - Nasopharyngitis [Unknown]
  - Diarrhoea [Unknown]
  - Hypotension [Unknown]
  - Dehydration [Unknown]
  - Oxygen saturation decreased [Unknown]
  - Pallor [Unknown]

NARRATIVE: CASE EVENT DATE: 20051015
